FAERS Safety Report 4982353-9 (Version None)
Quarter: 2006Q2

REPORT INFORMATION
  Report Type: 
  Country: None (occurrence: None)
  Receive Date: 20060419
  Receipt Date: 20060410
  Transmission Date: 20061013
  Serious: Yes (Hospitalization)
  Sender: FDA-Public Use
  Company Number: 2006BI005297

PATIENT
  Age: 58 Year
  Sex: Female
  Weight: 54.8852 kg

DRUGS (4)
  1. AVONEX [Suspect]
     Indication: MULTIPLE SCLEROSIS
     Dosage: 30 UG; QW; IM
     Route: 030
     Dates: start: 19960101, end: 20030101
  2. AVONEX [Suspect]
     Indication: MULTIPLE SCLEROSIS
     Dosage: 30 UG; QW; IM
     Route: 030
     Dates: start: 20030101
  3. CLONOPIN [Concomitant]
  4. DITROPAN [Concomitant]

REACTIONS (8)
  - AMNESIA [None]
  - BLOOD CHOLESTEROL INCREASED [None]
  - DIFFICULTY IN WALKING [None]
  - FALL [None]
  - FEELING ABNORMAL [None]
  - HIP FRACTURE [None]
  - MUSCULOSKELETAL STIFFNESS [None]
  - WEIGHT INCREASED [None]
